FAERS Safety Report 4475774-4 (Version None)
Quarter: 2004Q4

REPORT INFORMATION
  Report Type: 
  Country: None (occurrence: None)
  Receive Date: 20041015
  Receipt Date: 20041007
  Transmission Date: 20050328
  Serious: Yes (Disabling)
  Sender: FDA-Public Use
  Company Number: EC-GLAXOSMITHKLINE-A0529842A

PATIENT
  Age: 64 Year
  Sex: Female

DRUGS (3)
  1. ROSIGLITAZONE [Suspect]
     Indication: DIABETES MELLITUS NON-INSULIN-DEPENDENT
     Dosage: 4MG PER DAY
     Route: 048
     Dates: start: 20040801, end: 20041001
  2. METFORMIN HCL [Suspect]
     Indication: DIABETES MELLITUS NON-INSULIN-DEPENDENT
     Dosage: 850MG PER DAY
     Route: 048
     Dates: start: 20000801, end: 20041001
  3. ITRACONAZOLE [Suspect]
     Indication: HISTOPLASMOSIS
     Dosage: 100MG TWICE PER DAY
     Route: 048
     Dates: start: 20040701, end: 20041001

REACTIONS (2)
  - ADRENAL NEOPLASM [None]
  - BONE MARROW DEPRESSION [None]
